FAERS Safety Report 6162463-3 (Version None)
Quarter: 2009Q2

REPORT INFORMATION
  Report Type: 
  Country: None (occurrence: None)
  Receive Date: 20090421
  Receipt Date: 20090415
  Transmission Date: 20091009
  Serious: Yes (Hospitalization, Other)
  Sender: FDA-Public Use
  Company Number: PHHY2009IL14397

PATIENT
  Age: 50 Year

DRUGS (3)
  1. MYCOPHENOLIC ACID [Suspect]
     Indication: LIVER TRANSPLANT
  2. TACROLIMUS [Suspect]
     Indication: LIVER TRANSPLANT
  3. PREDNISONE [Suspect]
     Indication: LIVER TRANSPLANT

REACTIONS (11)
  - ASCITES [None]
  - HEPATIC ENCEPHALOPATHY [None]
  - LAPAROTOMY [None]
  - MALAISE [None]
  - PERITONEAL HAEMORRHAGE [None]
  - PORTAL VEIN THROMBOSIS [None]
  - PYREXIA [None]
  - SEPTIC SHOCK [None]
  - SERRATIA INFECTION [None]
  - SPLENORENAL SHUNT [None]
  - TRANSPLANT REJECTION [None]
